FAERS Safety Report 17974576 (Version 3)
Quarter: 2022Q2

REPORT INFORMATION
  Report Type: Spontaneous
  Country: US (occurrence: US)
  Receive Date: 20200702
  Receipt Date: 20220519
  Transmission Date: 20220721
  Serious: No
  Sender: FDA-Public Use
  Company Number: US-PFIZER INC-2020255050

PATIENT
  Age: 82 Year
  Sex: Female
  Weight: 85.714 kg

DRUGS (3)
  1. IBRANCE [Suspect]
     Active Substance: PALBOCICLIB
     Indication: Breast cancer stage IV
     Dosage: 125 MG
  2. IBRANCE [Suspect]
     Active Substance: PALBOCICLIB
     Dosage: 75 MG, CYCLIC (DAYS 1-21 OF 28 DAYS)
     Route: 048
     Dates: start: 20201209
  3. LETROZOLE [Concomitant]
     Active Substance: LETROZOLE
     Dosage: 25 MG, DAILY

REACTIONS (3)
  - Oral pain [Unknown]
  - Dizziness [Unknown]
  - Pruritus [Unknown]
